FAERS Safety Report 6623878-X (Version None)
Quarter: 2010Q1

REPORT INFORMATION
  Report Type: 
  Country: None (occurrence: None)
  Receive Date: 20100310
  Receipt Date: 20100304
  Transmission Date: 20100710
  Serious: Yes (Death, Hospitalization)
  Sender: FDA-Public Use
  Company Number: PHHY2009IE17034

PATIENT
  Sex: Male

DRUGS (3)
  1. CLOZARIL [Suspect]
     Indication: SCHIZOPHRENIA
     Dosage: 225 MG, BID
     Dates: start: 20000524
  2. CLOZARIL [Suspect]
     Dosage: 225 MG, BID
     Dates: start: 20000926
  3. GALFER [Suspect]
     Dosage: 1 DAILY
     Route: 048

REACTIONS (7)
  - ASTHENIA [None]
  - BLOOD CHOLESTEROL INCREASED [None]
  - BLOOD TRIGLYCERIDES INCREASED [None]
  - DIZZINESS [None]
  - GAIT DISTURBANCE [None]
  - MALAISE [None]
  - SUDDEN DEATH [None]
